FAERS Safety Report 6984796-0 (Version None)
Quarter: 2010Q3

REPORT INFORMATION
  Report Type: 
  Country: None (occurrence: None)
  Receive Date: 20100914
  Receipt Date: 20100914
  Transmission Date: 20110219
  Serious: No
  Sender: FDA-Public Use
  Company Number: None

PATIENT

DRUGS (1)
  1. BENAZEPRIL HYDROCHLORIDE [Suspect]

REACTIONS (6)
  - ANXIETY [None]
  - BLOOD PRESSURE SYSTOLIC INCREASED [None]
  - FEELING ABNORMAL [None]
  - HEADACHE [None]
  - LACRIMATION INCREASED [None]
  - MEMORY IMPAIRMENT [None]
